FAERS Safety Report 4951662-1 (Version None)
Quarter: 2006Q1

REPORT INFORMATION
  Report Type: 
  Country: None (occurrence: None)
  Receive Date: 20060322
  Receipt Date: 20060322
  Transmission Date: 20060701
  Serious: Yes (Hospitalization)
  Sender: FDA-Public Use
  Company Number: None

PATIENT
  Age: 54 Year
  Sex: Male
  Weight: 90.7194 kg

DRUGS (2)
  1. LENALIDOMIDE 25 MG CELGENE [Suspect]
     Indication: GLIOBLASTOMA
     Dosage: 30 MG DAILY PO
     Route: 048
     Dates: start: 20060210, end: 20060321
  2. LENALIDOMIDE 5 MG CELGENE [Suspect]

REACTIONS (1)
  - PNEUMONIA [None]
